FAERS Safety Report 4630521-8 (Version None)
Quarter: 2005Q2

REPORT INFORMATION
  Report Type: 
  Country: None (occurrence: None)
  Receive Date: 20050408
  Receipt Date: 20040921
  Transmission Date: 20051028
  Serious: Yes (Other)
  Sender: FDA-Public Use
  Company Number: US-GLAXOSMITHKLINE-A0527542A

PATIENT
  Sex: Male
  Weight: 97.3 kg

DRUGS (1)
  1. PAXIL [Suspect]
     Indication: TREMOR
     Route: 048
     Dates: start: 20001212, end: 20040901

REACTIONS (5)
  - DEPENDENCE [None]
  - DRUG WITHDRAWAL SYNDROME [None]
  - HEADACHE [None]
  - NAUSEA [None]
  - VOMITING [None]
